FAERS Safety Report 16567258 (Version 1)
Quarter: 2019Q3

REPORT INFORMATION
  Report Type: Spontaneous
  Country: US (occurrence: US)
  Receive Date: 20190712
  Receipt Date: 20190712
  Transmission Date: 20191004
  Serious: No
  Sender: FDA-Public Use
  Company Number: US-ASTRAZENECA-2019SE88323

PATIENT
  Sex: Female

DRUGS (3)
  1. PULMICORT FLEXHALER [Suspect]
     Active Substance: BUDESONIDE
     Indication: ASTHMA
     Dosage: 180 MCG ,TWO PUFFS, TWO TIMES A DAY
     Route: 055
  2. SEREVENT DISCUS [Concomitant]
     Dosage: 1 PUFF IN THE MORNING AND 1 PUFF AT NIGHT
     Route: 065
  3. PULMICORT FLEXHALER [Suspect]
     Active Substance: BUDESONIDE
     Indication: CHRONIC OBSTRUCTIVE PULMONARY DISEASE
     Dosage: 180 MCG ,TWO PUFFS, TWO TIMES A DAY
     Route: 055

REACTIONS (4)
  - Candida infection [Unknown]
  - Tongue disorder [Unknown]
  - Product use in unapproved indication [Unknown]
  - Off label use [Unknown]
